FAERS Safety Report 15207688 (Version 1)
Quarter: 2018Q3

REPORT INFORMATION
  Report Type: Spontaneous
  Country: US (occurrence: US)
  Receive Date: 20180727
  Receipt Date: 20180727
  Transmission Date: 20181010
  Serious: No
  Sender: FDA-Public Use
  Company Number: US-GLAXOSMITHKLINE-US2018GSK132972

PATIENT
  Sex: Male

DRUGS (3)
  1. KLONOPIN [Concomitant]
     Active Substance: CLONAZEPAM
     Indication: PRODUCT USED FOR UNKNOWN INDICATION
  2. ACYCLOVIR TABLET [Suspect]
     Active Substance: ACYCLOVIR
     Indication: STOMATITIS
     Dosage: 2 DF, BID
     Route: 048
     Dates: start: 201806
  3. ACYCLOVIR OINTMENT [Suspect]
     Active Substance: ACYCLOVIR
     Indication: STOMATITIS
     Dosage: UNK
     Route: 061
     Dates: start: 201806

REACTIONS (2)
  - Abdominal pain upper [Not Recovered/Not Resolved]
  - Insomnia [Not Recovered/Not Resolved]
